FAERS Safety Report 9246839 (Version 1)
Quarter: 2013Q2

REPORT INFORMATION
  Report Type: Report from Study
  Country: US (occurrence: US)
  Receive Date: 20130422
  Receipt Date: 20130422
  Transmission Date: 20140414
  Serious: Yes (Hospitalization)
  Sender: FDA-Public Use
  Company Number: PHHO2013US005432

PATIENT
  Age: 63 Year
  Sex: Female
  Weight: 91.5 kg

DRUGS (2)
  1. SOM230 [Suspect]
     Indication: NEUROENDOCRINE TUMOUR
     Dosage: 60 MG EVERY 28 DAYS
     Route: 030
     Dates: start: 20121002
  2. AFINITOR [Suspect]
     Indication: NEUROENDOCRINE TUMOUR
     Dosage: 10 MG DAILY
     Route: 048
     Dates: start: 20120710

REACTIONS (1)
  - Hypersensitivity [Unknown]
